FAERS Safety Report 18470722 (Version 1)
Quarter: 2020Q4

REPORT INFORMATION
  Report Type: Other
  Country: GB (occurrence: GB)
  Receive Date: 20201105
  Receipt Date: 20201105
  Transmission Date: 20210114
  Serious: Yes (Hospitalization, Other)
  Sender: FDA-Public Use
  Company Number: GB-ROCHE-2191417

PATIENT
  Sex: Female

DRUGS (4)
  1. ROACTEMRA [Suspect]
     Active Substance: TOCILIZUMAB
     Indication: RHEUMATOID ARTHRITIS
     Route: 058
     Dates: start: 20180926
  2. TURMERIC [Concomitant]
     Active Substance: HERBALS\TURMERIC
  3. PARACETAMOL [Concomitant]
     Active Substance: ACETAMINOPHEN
  4. SERTRALINE [Concomitant]
     Active Substance: SERTRALINE HYDROCHLORIDE

REACTIONS (25)
  - Dry mouth [Unknown]
  - Discomfort [Unknown]
  - White blood cell count [Unknown]
  - Feeling abnormal [Unknown]
  - Fatigue [Unknown]
  - Headache [Unknown]
  - Platelet count decreased [Unknown]
  - Dysphonia [Unknown]
  - Ear infection [Unknown]
  - Sluggishness [Unknown]
  - Immune system disorder [Unknown]
  - Gastrointestinal disorder [Unknown]
  - Dyspepsia [Unknown]
  - Deafness [Unknown]
  - Hyperacusis [Unknown]
  - Hot flush [Unknown]
  - Nasopharyngitis [Unknown]
  - Sensory disturbance [Unknown]
  - Dry eye [Unknown]
  - Gastrooesophageal reflux disease [Unknown]
  - Dizziness [Recovered/Resolved]
  - Head discomfort [Unknown]
  - Mental disorder [Unknown]
  - Illness [Unknown]
  - Decreased appetite [Unknown]

NARRATIVE: CASE EVENT DATE: 201811
